FAERS Safety Report 17390863 (Version 1)
Quarter: 2020Q1

REPORT INFORMATION
  Report Type: Spontaneous
  Country: JP (occurrence: JP)
  Receive Date: 20200207
  Receipt Date: 20200207
  Transmission Date: 20200409
  Serious: Yes (Other)
  Sender: FDA-Public Use
  Company Number: JP-SHIRE-JP202004704

PATIENT

DRUGS (1)
  1. INTUNIV [Suspect]
     Active Substance: GUANFACINE HYDROCHLORIDE
     Indication: NEURODEVELOPMENTAL DISORDER
     Dosage: 1 MILLIGRAM, 1X/DAY:QD
     Route: 048

REACTIONS (1)
  - Hyperprolactinaemia [Not Recovered/Not Resolved]

NARRATIVE: CASE EVENT DATE: 20200129
